FAERS Safety Report 18959921 (Version 9)
Quarter: 2023Q1

REPORT INFORMATION
  Report Type: Spontaneous
  Country: JP (occurrence: JP)
  Receive Date: 20210303
  Receipt Date: 20230123
  Transmission Date: 20230418
  Serious: Yes (Hospitalization, Other)
  Sender: FDA-Public Use
  Company Number: JP-BRISTOL-MYERS SQUIBB COMPANY-BMS-2021-018761

PATIENT
  Age: 27 Year
  Sex: Male
  Weight: 73.6 kg

DRUGS (2)
  1. YERVOY [Suspect]
     Active Substance: IPILIMUMAB
     Indication: Colon cancer
     Dosage: 3 MG/KG, Q3W
     Route: 041
     Dates: start: 20201214, end: 20210125
  2. OPDIVO [Suspect]
     Active Substance: NIVOLUMAB
     Indication: Colon cancer
     Dosage: 240 MILLIGRAM, Q3WK
     Route: 041
     Dates: start: 20201214, end: 20210125

REACTIONS (3)
  - Immune-mediated enterocolitis [Recovering/Resolving]
  - Diabetic ketoacidosis [Unknown]
  - Off label use [Unknown]

NARRATIVE: CASE EVENT DATE: 20210201
